FAERS Safety Report 23094291 (Version 2)
Quarter: 2023Q4

REPORT INFORMATION
  Report Type: Report from Study
  Country: US (occurrence: US)
  Receive Date: 20231023
  Receipt Date: 20231103
  Transmission Date: 20240110
  Serious: No
  Sender: FDA-Public Use
  Company Number: US-DECIPHERA PHARMACEUTICALS LLC-2023US000916

PATIENT
  Age: 43 Year
  Sex: Male

DRUGS (1)
  1. QINLOCK [Suspect]
     Active Substance: RIPRETINIB
     Indication: Gastrointestinal stromal tumour
     Dosage: 150 MILLIGRAM, QD
     Route: 048
     Dates: start: 20230928

REACTIONS (3)
  - Red blood cell count decreased [Unknown]
  - White blood cell count decreased [Unknown]
  - Myalgia [Unknown]

NARRATIVE: CASE EVENT DATE: 20230101
